FAERS Safety Report 5402713-1 (Version None)
Quarter: 2007Q3

REPORT INFORMATION
  Report Type: 
  Country: None (occurrence: None)
  Receive Date: 20070801
  Receipt Date: 20070724
  Transmission Date: 20080115
  Serious: Yes (Death)
  Sender: FDA-Public Use
  Company Number: B0481565A

PATIENT
  Age: 18 Year
  Sex: Male

DRUGS (2)
  1. ALBENDAZOLE [Suspect]
     Dosage: 400MG SINGLE DOSE
  2. IVERMECTIN [Suspect]
     Dosage: 200MCK SINGLE DOSE
     Route: 065

REACTIONS (2)
  - DEATH [None]
  - STEVENS-JOHNSON SYNDROME [None]
